FAERS Safety Report 4738629-3 (Version None)
Quarter: 2005Q3

REPORT INFORMATION
  Report Type: 
  Country: None (occurrence: None)
  Receive Date: 20050802
  Receipt Date: 20050715
  Transmission Date: 20060218
  Serious: No
  Sender: FDA-Public Use
  Company Number: CART-312-M00USA

PATIENT
  Age: 46 Year
  Sex: Female

DRUGS (1)
  1. CARTICEL [Suspect]
     Indication: ARTHROPATHY
     Dosage: 1 NA ONCE IS
     Route: 035
     Dates: start: 19980608, end: 19980608

REACTIONS (5)
  - ARTHROFIBROSIS [None]
  - GRAFT COMPLICATION [None]
  - HYPERTROPHY [None]
  - JOINT ADHESION [None]
  - JOINT DISLOCATION [None]
